FAERS Safety Report 7743489-2 (Version None)
Quarter: 2011Q3

REPORT INFORMATION
  Report Type: 
  Country: None (occurrence: None)
  Receive Date: 20110912
  Receipt Date: 20110518
  Transmission Date: 20111222
  Serious: No
  Sender: FDA-Public Use
  Company Number: US-ABBOTT-11P-163-0727422-00

PATIENT
  Sex: Male
  Weight: 78.542 kg

DRUGS (8)
  1. LISINOPRIL [Concomitant]
     Indication: HYPERTENSION
  2. BENTYL [Concomitant]
     Indication: IRRITABLE BOWEL SYNDROME
  3. ALPRAZOLAM [Concomitant]
     Indication: ANXIETY
  4. CEPHALEXIN [Concomitant]
     Indication: PRODUCT USED FOR UNKNOWN INDICATION
  5. AMLODIPINE [Concomitant]
     Indication: PRODUCT USED FOR UNKNOWN INDICATION
  6. DEPAKOTE [Suspect]
     Indication: PETIT MAL EPILEPSY
     Dates: start: 19960101
  7. FLUOXETINE [Concomitant]
     Indication: ANTIDEPRESSANT THERAPY
  8. OMEPRAZOLE [Concomitant]
     Indication: PRODUCT USED FOR UNKNOWN INDICATION

REACTIONS (4)
  - ACTIVITIES OF DAILY LIVING IMPAIRED [None]
  - HYPERSOMNIA [None]
  - FATIGUE [None]
  - BLOOD PRESSURE INCREASED [None]
